FAERS Safety Report 6537954-3 (Version None)
Quarter: 2010Q1

REPORT INFORMATION
  Report Type: 
  Country: None (occurrence: None)
  Receive Date: 20100112
  Receipt Date: 20100112
  Transmission Date: 20100710
  Serious: Yes (Hospitalization)
  Sender: FDA-Public Use
  Company Number: None

PATIENT
  Age: 84 Year
  Sex: Female
  Weight: 79.54 kg

DRUGS (8)
  1. ULTRAM [Suspect]
     Indication: PAIN
     Dosage: 50MG (2TABS) Q 4-6H PRN PO (RECENT)
     Route: 048
  2. IRON [Concomitant]
  3. COREG [Concomitant]
  4. VITAMIN K TAB [Concomitant]
  5. ASPIRIN [Concomitant]
  6. NORCO [Concomitant]
  7. ATIVAN [Concomitant]
  8. SERTRALINE HCL [Concomitant]

REACTIONS (1)
  - ANGIOEDEMA [None]
